FAERS Safety Report 6419755-X (Version None)
Quarter: 2009Q4

REPORT INFORMATION
  Report Type: 
  Country: None (occurrence: None)
  Receive Date: 20091029
  Receipt Date: 20091021
  Transmission Date: 20100525
  Serious: Yes (Other)
  Sender: FDA-Public Use
  Company Number: CA-JNJFOC-20091007310

PATIENT
  Sex: Male
  Weight: 101 kg

DRUGS (2)
  1. REMICADE [Suspect]
     Indication: ANKYLOSING SPONDYLITIS
     Route: 042
     Dates: start: 20070101, end: 20090917
  2. PREDNISONE TAB [Concomitant]
     Route: 048

REACTIONS (1)
  - CATARACT [None]
